FAERS Safety Report 12073080 (Version 1)
Quarter: 2016Q1

REPORT INFORMATION
  Report Type: Spontaneous
  Country: None (occurrence: None)
  Receive Date: 20160211
  Receipt Date: 20160211
  Transmission Date: 20160526
  Serious: No
  Sender: FDA-Public Use
  Company Number: None

PATIENT
  Age: 10 Year
  Sex: Female
  Weight: 43 kg

DRUGS (9)
  1. ZANTAC [Concomitant]
     Active Substance: RANITIDINE HYDROCHLORIDE
  2. ACETAMINOPHEN-CODEINE (TYLENOL WITH CODEINE #3) [Concomitant]
  3. SODIUM CHLORIDE 0.9% INJECTION [Concomitant]
  4. EPINEPHRINE (EPIPEN) [Concomitant]
  5. PEGASPARGASE [Suspect]
     Active Substance: PEGASPARGASE
  6. ZOFRAN [Concomitant]
     Active Substance: ONDANSETRON HYDROCHLORIDE
  7. MIRALAX [Concomitant]
     Active Substance: POLYETHYLENE GLYCOL 3350
  8. SULFAMETHOXAZOLE-TRIMETHOPRIM (BACTRIM) [Concomitant]
  9. DIPHENHYDRAMINE (BENADRYL) [Concomitant]

REACTIONS (3)
  - Pancreatitis [None]
  - Ammonia increased [None]
  - Blood triglycerides increased [None]

NARRATIVE: CASE EVENT DATE: 20150825
